FAERS Safety Report 15234559 (Version 3)
Quarter: 2018Q3

REPORT INFORMATION
  Report Type: Spontaneous
  Country: JP (occurrence: JP)
  Receive Date: 20180803
  Receipt Date: 20180924
  Transmission Date: 20181010
  Serious: No
  Sender: FDA-Public Use
  Company Number: JP-ABBVIE-18K-087-2439670-00

PATIENT
  Age: 67 Year
  Sex: Male
  Weight: 44 kg

DRUGS (3)
  1. MAVIRET [Suspect]
     Active Substance: GLECAPREVIR\PIBRENTASVIR
     Indication: HEPATIC CIRRHOSIS
     Route: 048
     Dates: start: 20180702, end: 20180723
  2. MAVIRET [Suspect]
     Active Substance: GLECAPREVIR\PIBRENTASVIR
     Route: 048
     Dates: start: 20180809
  3. SILODOSIN [Concomitant]
     Active Substance: SILODOSIN
     Indication: URETHRAL STENOSIS
     Route: 048
     Dates: start: 20180226

REACTIONS (2)
  - Cytopenia [Recovered/Resolved]
  - Urethral stenosis [Unknown]

NARRATIVE: CASE EVENT DATE: 20180723
